FAERS Safety Report 20332239 (Version 1)
Quarter: 2022Q1

REPORT INFORMATION
  Report Type: Spontaneous
  Country: MY (occurrence: MY)
  Receive Date: 20220113
  Receipt Date: 20220113
  Transmission Date: 20220423
  Serious: Yes (Hospitalization)
  Sender: FDA-Public Use
  Company Number: MY-MYLANLABS-2022M1002844

PATIENT
  Age: 44 Year
  Sex: Male

DRUGS (5)
  1. VANCOMYCIN [Suspect]
     Active Substance: VANCOMYCIN
     Indication: Staphylococcal bacteraemia
     Dosage: UNK
     Route: 042
  2. VANCOMYCIN [Suspect]
     Active Substance: VANCOMYCIN
     Indication: Septic shock
  3. PIPERACILLIN SODIUM\TAZOBACTAM SODIUM [Suspect]
     Active Substance: PIPERACILLIN SODIUM\TAZOBACTAM SODIUM
     Indication: Staphylococcal bacteraemia
     Dosage: UNK
     Route: 042
  4. MEROPENEM [Suspect]
     Active Substance: MEROPENEM
     Indication: Staphylococcal bacteraemia
     Dosage: UNK
     Route: 042
  5. FUROSEMIDE [Concomitant]
     Active Substance: FUROSEMIDE
     Indication: Pulmonary congestion
     Dosage: UNK

REACTIONS (1)
  - Drug ineffective [Unknown]
